FAERS Safety Report 8553524-X (Version None)
Quarter: 2012Q3

REPORT INFORMATION
  Report Type: 
  Country: None (occurrence: None)
  Receive Date: 20120731
  Receipt Date: 20120716
  Transmission Date: 20120928
  Serious: Yes (Other)
  Sender: FDA-Public Use
  Company Number: SE-AMGEN-US365071

PATIENT
  Age: 66 Year
  Sex: Female

DRUGS (5)
  1. ETANERCEPT [Suspect]
     Indication: RHEUMATOID ARTHRITIS
     Dosage: 50 MG, UNK
     Route: 065
     Dates: start: 20040714, end: 20090831
  2. NABUMETONE [Concomitant]
     Dosage: 500 MG, UNK
     Route: 065
  3. FOLIC ACID [Concomitant]
     Dosage: 10 MG, UNK
     Route: 065
  4. DICLOFENAC [Concomitant]
     Dosage: 50 MG, UNK
     Route: 065
  5. METHOTREXATE [Concomitant]
     Dosage: 7.5 MG, UNK
     Route: 065

REACTIONS (3)
  - DEAFNESS UNILATERAL [None]
  - FACIAL PARESIS [None]
  - HERPES ZOSTER INFECTION NEUROLOGICAL [None]
